FAERS Safety Report 15985738 (Version 1)
Quarter: 2019Q1

REPORT INFORMATION
  Report Type: Spontaneous
  Country: US (occurrence: US)
  Receive Date: 20190220
  Receipt Date: 20190220
  Transmission Date: 20190418
  Serious: No
  Sender: FDA-Public Use
  Company Number: US-LANTHEUS-LMI-2018-00661

PATIENT

DRUGS (1)
  1. DEFINITY [Suspect]
     Active Substance: PERFLUTREN
     Indication: PRODUCT USED FOR UNKNOWN INDICATION
     Dosage: UNK
     Route: 065
     Dates: start: 20181218, end: 20181218

REACTIONS (4)
  - Groin pain [Unknown]
  - Headache [Unknown]
  - Back pain [Unknown]
  - Pain in extremity [Unknown]

NARRATIVE: CASE EVENT DATE: 20181218
